FAERS Safety Report 7978428-2 (Version None)
Quarter: 2011Q4

REPORT INFORMATION
  Report Type: 
  Country: None (occurrence: None)
  Receive Date: 20111214
  Receipt Date: 20111205
  Transmission Date: 20120403
  Serious: Yes (Death)
  Sender: FDA-Public Use
  Company Number: DE-TEVA-312399GER

PATIENT
  Age: 55 Year
  Sex: Male

DRUGS (5)
  1. INDOMETHACIN [Suspect]
  2. ZUCLOPENTHIXOL ACETATE [Suspect]
     Dosage: 100 MILLIGRAM;
  3. DULOXETINE HYDROCHLORIDE [Suspect]
     Dosage: 120 MILLIGRAM;
  4. AMITRIPTYLINE HCL [Suspect]
     Dosage: 200 MILLIGRAM;
  5. MELPERONE [Suspect]
     Dosage: 150 MILLIGRAM;

REACTIONS (4)
  - CARDIO-RESPIRATORY ARREST [None]
  - HYPONATRAEMIA [None]
  - HYPOKALAEMIA [None]
  - LOSS OF CONSCIOUSNESS [None]
